FAERS Safety Report 5874605-5 (Version None)
Quarter: 2008Q3

REPORT INFORMATION
  Report Type: 
  Country: None (occurrence: None)
  Receive Date: 20080905
  Receipt Date: 20080905
  Transmission Date: 20090109
  Serious: Yes (Life-Threatening, Disabling)
  Sender: FDA-Public Use
  Company Number: None

PATIENT
  Age: 57 Year
  Sex: Female
  Weight: 73.0291 kg

DRUGS (1)
  1. SENSODYNE-F [Suspect]
     Indication: SENSITIVITY OF TEETH
     Dosage: ONE INCH ON TOOTHBRUSH 2-3 X'S DAY PO
     Route: 048
     Dates: start: 20080903, end: 20080903

REACTIONS (8)
  - DIZZINESS [None]
  - ERYTHEMA [None]
  - GINGIVAL BLEEDING [None]
  - HYPOAESTHESIA [None]
  - HYPOAESTHESIA ORAL [None]
  - INTRANASAL HYPOAESTHESIA [None]
  - PARAESTHESIA ORAL [None]
  - TONGUE DISORDER [None]
